FAERS Safety Report 18296894 (Version 1)
Quarter: 2020Q3

REPORT INFORMATION
  Report Type: Report from Study
  Country: GB (occurrence: GB)
  Receive Date: 20200922
  Receipt Date: 20200922
  Transmission Date: 20201103
  Serious: Yes (Other)
  Sender: FDA-Public Use
  Company Number: GB-JNJFOC-20200925223

PATIENT
  Age: 61 Year
  Sex: Male
  Weight: 131.5 kg

DRUGS (9)
  1. DOVOBET [Concomitant]
     Active Substance: BETAMETHASONE\CALCIPOTRIENE
     Dates: start: 20111114
  2. RAMIPRIL. [Concomitant]
     Active Substance: RAMIPRIL
     Dates: start: 20120215
  3. ATORVASTATIN [Concomitant]
     Active Substance: ATORVASTATIN
     Dates: start: 20150928
  4. CLOPIDOGREL [Concomitant]
     Active Substance: CLOPIDOGREL BISULFATE
     Dates: start: 20131015
  5. PREGABALIN. [Concomitant]
     Active Substance: PREGABALIN
     Dates: start: 20141215
  6. MST                                /00021210/ [Concomitant]
     Active Substance: MAGNESIUM SALICYLATE
     Dates: start: 20150115
  7. STELARA [Suspect]
     Active Substance: USTEKINUMAB
     Indication: PSORIASIS
     Route: 058
     Dates: start: 20130116
  8. LORATADINE. [Concomitant]
     Active Substance: LORATADINE
     Dates: start: 20170703
  9. INSULATARD                         /00646002/ [Concomitant]
     Active Substance: INSULIN HUMAN
     Dates: start: 20120220

REACTIONS (1)
  - COVID-19 [Not Recovered/Not Resolved]

NARRATIVE: CASE EVENT DATE: 20200401
